FAERS Safety Report 10069692 (Version 1)
Quarter: 2014Q2

REPORT INFORMATION
  Report Type: Spontaneous
  Country: US (occurrence: None)
  Receive Date: 20140409
  Receipt Date: 20140409
  Transmission Date: 20141212
  Serious: Yes (Life-Threatening, Hospitalization, Disabling)
  Sender: FDA-Public Use
  Company Number: None

PATIENT
  Sex: 0

DRUGS (1)
  1. QUETIAPINE [Suspect]

REACTIONS (4)
  - Neuroleptic malignant syndrome [None]
  - Coma [None]
  - Muscle rigidity [None]
  - Musculoskeletal stiffness [None]
